FAERS Safety Report 7706938-1 (Version None)
Quarter: 2011Q3

REPORT INFORMATION
  Report Type: 
  Country: None (occurrence: None)
  Receive Date: 20110824
  Receipt Date: 20110818
  Transmission Date: 20111222
  Serious: Yes (Hospitalization)
  Sender: FDA-Public Use
  Company Number: FR-GLAXOSMITHKLINE-B0740615A

PATIENT
  Age: 77 Year
  Sex: Male

DRUGS (6)
  1. ALLOPURINOL [Suspect]
     Indication: PRODUCT USED FOR UNKNOWN INDICATION
     Route: 065
     Dates: start: 20110101, end: 20110315
  2. TEGRETOL [Suspect]
     Indication: PRODUCT USED FOR UNKNOWN INDICATION
     Route: 065
     Dates: start: 20110313, end: 20110322
  3. AUGMENTIN '125' [Concomitant]
     Route: 065
  4. LAMICTAL [Suspect]
     Indication: PRODUCT USED FOR UNKNOWN INDICATION
     Route: 065
     Dates: start: 20110101, end: 20110322
  5. PREVISCAN [Concomitant]
     Route: 065
  6. AMIODARONE HCL [Concomitant]
     Route: 065

REACTIONS (11)
  - LUNG DISORDER [None]
  - SOMNOLENCE [None]
  - CHOLESTASIS [None]
  - STOMATITIS [None]
  - DRUG RASH WITH EOSINOPHILIA AND SYSTEMIC SYMPTOMS [None]
  - RENAL FAILURE [None]
  - CREPITATIONS [None]
  - TOXIC SKIN ERUPTION [None]
  - DYSPNOEA EXERTIONAL [None]
  - RASH MACULO-PAPULAR [None]
  - FACE OEDEMA [None]
